FAERS Safety Report 20355431 (Version 2)
Quarter: 2022Q1

REPORT INFORMATION
  Report Type: Spontaneous
  Country: FI (occurrence: FI)
  Receive Date: 20220120
  Receipt Date: 20220127
  Transmission Date: 20220423
  Serious: Yes (Other)
  Sender: FDA-Public Use
  Company Number: FI-PFIZER INC-202101566298

PATIENT
  Age: 72 Year
  Sex: Female

DRUGS (12)
  1. INFLIXIMAB [Suspect]
     Active Substance: INFLIXIMAB
     Indication: Colitis ulcerative
     Dosage: 350 MG
     Route: 042
     Dates: start: 20210329
  2. INFLIXIMAB [Suspect]
     Active Substance: INFLIXIMAB
     Dosage: UNK, EVERY 6 WEEKS
     Route: 065
     Dates: start: 20211217
  3. SULFAMETHOXAZOLE\TRIMETHOPRIM [Suspect]
     Active Substance: SULFAMETHOXAZOLE\TRIMETHOPRIM
     Dosage: UNK
     Route: 065
     Dates: start: 202103
  4. ELIQUIS [Concomitant]
     Active Substance: APIXABAN
     Dosage: 5 MG, 2X/DAY
     Route: 048
  5. MAGNESIUM HYDROXIDE [Concomitant]
     Active Substance: MAGNESIUM HYDROXIDE
     Dosage: 250 MG, 1X/DAY
     Route: 048
  6. MAGNESIUM HYDROXIDE [Concomitant]
     Active Substance: MAGNESIUM HYDROXIDE
     Dosage: UNK UNK, 2X/DAY
     Route: 048
  7. HYDREX [HYDROCHLOROTHIAZIDE] [Concomitant]
     Dosage: 25 MG, 1X/DAY
     Route: 048
  8. POTASSIUM CHLORIDE [Concomitant]
     Active Substance: POTASSIUM CHLORIDE
     Dosage: 1000 MG, 2X/DAY
     Route: 048
  9. MEDITHYROX [Concomitant]
     Dosage: 100 MICROGRAM ORAL 3 TIMES A WEEK
     Route: 048
  10. MEDITHYROX [Concomitant]
     Dosage: 75 MICROGRAMS ORAL 4 TIMES A WEEK
     Route: 048
  11. CHOLECALCIFEROL [Concomitant]
     Active Substance: CHOLECALCIFEROL
     Dosage: 20 UG, 1X/DAY
     Route: 048
  12. SOLU-CORTEF [Concomitant]
     Active Substance: HYDROCORTISONE SODIUM SUCCINATE
     Dosage: 10 MG, CYCLIC
     Dates: start: 20211217

REACTIONS (7)
  - Respiratory distress [Recovered/Resolved]
  - Erythema [Recovered/Resolved]
  - Cutaneous symptom [Unknown]
  - Dyspnoea [Recovered/Resolved]
  - Fatigue [Recovered/Resolved]
  - Erythema [Recovered/Resolved]
  - Blood pressure decreased [Recovered/Resolved]

NARRATIVE: CASE EVENT DATE: 20211105
